FAERS Safety Report 19967492 (Version 7)
Quarter: 2021Q4

REPORT INFORMATION
  Report Type: Spontaneous
  Country: US (occurrence: US)
  Receive Date: 20211019
  Receipt Date: 20211223
  Transmission Date: 20220304
  Serious: No
  Sender: FDA-Public Use
  Company Number: US-AIMMUNE THERAPEUTICS, INC.-2021AIMT00622

PATIENT

DRUGS (14)
  1. PALFORZIA [Suspect]
     Active Substance: PEANUT
     Indication: Food allergy
     Dosage: 3 MG, 1X/DAY
     Route: 048
     Dates: start: 20210923, end: 20211014
  2. PALFORZIA [Suspect]
     Active Substance: PEANUT
     Dosage: 3 MG, 1X/DAY, LAST DOSE PRIOR LUMP, THROAT PAIN, CLOGGED EARS AND ITCHY EARS
     Route: 048
     Dates: start: 20211008, end: 20211008
  3. PALFORZIA [Suspect]
     Active Substance: PEANUT
     Dosage: 3 MG, 1X/DAY, LAST DOSE PRIOR STOMACH ACHE
     Route: 048
     Dates: start: 20211012, end: 20211012
  4. PALFORZIA [Suspect]
     Active Substance: PEANUT
     Dosage: 1.5 MG, 1X/DAY,
     Route: 048
     Dates: start: 20211015, end: 20211017
  5. PALFORZIA [Suspect]
     Active Substance: PEANUT
     Dosage: 3 MG, 1X/DAY
     Route: 048
     Dates: start: 20211018, end: 20211018
  6. PALFORZIA [Suspect]
     Active Substance: PEANUT
     Dosage: 3 MG, 1X/DAY
     Route: 048
     Dates: start: 20211020, end: 20211022
  7. PALFORZIA [Suspect]
     Active Substance: PEANUT
     Dosage: 1.5 MG, 1X/DAY
     Route: 048
     Dates: start: 20211023, end: 20211028
  8. PALFORZIA [Suspect]
     Active Substance: PEANUT
     Dosage: 3 MG, 1X/DAY
     Route: 048
     Dates: start: 20211029, end: 20211101
  9. PALFORZIA [Suspect]
     Active Substance: PEANUT
     Dosage: 1.5 MG, 1X/DAY
     Route: 048
     Dates: start: 20211102, end: 20211108
  10. PALFORZIA [Suspect]
     Active Substance: PEANUT
     Dosage: 3 MG, 1X/DAY
     Route: 048
     Dates: start: 20211109, end: 20211206
  11. PALFORZIA [Suspect]
     Active Substance: PEANUT
     Dosage: 4.5 MG, 1X/DAY
     Route: 048
     Dates: start: 20211207
  12. ZYRTEC [Concomitant]
     Active Substance: CETIRIZINE HYDROCHLORIDE
     Indication: Prophylaxis
     Dosage: UNK, 1X/DAY
  13. PROBIOTICS NOS [Concomitant]
     Active Substance: PROBIOTICS NOS
     Indication: Prophylaxis
     Dosage: UNK, 1X/DAY
  14. EPINEPHRINE [Concomitant]
     Active Substance: EPINEPHRINE
     Indication: Product used for unknown indication

REACTIONS (5)
  - Sensation of foreign body [Recovered/Resolved]
  - Oropharyngeal pain [Recovered/Resolved]
  - Ear discomfort [Recovered/Resolved]
  - Ear pruritus [Recovered/Resolved]
  - Abdominal pain upper [Recovered/Resolved]

NARRATIVE: CASE EVENT DATE: 20211008
